FAERS Safety Report 17368078 (Version 1)
Quarter: 2020Q1

REPORT INFORMATION
  Report Type: Spontaneous
  Country: BR (occurrence: BR)
  Receive Date: 20200204
  Receipt Date: 20200204
  Transmission Date: 20200409
  Serious: Yes (Hospitalization, Other)
  Sender: FDA-Public Use
  Company Number: BR-PFIZER INC-2019211341

PATIENT
  Age: 35 Year
  Sex: Female
  Weight: 79 kg

DRUGS (3)
  1. SUTENT [Suspect]
     Active Substance: SUNITINIB MALATE
     Dosage: 50 MG, DAILY
     Dates: start: 20200113
  2. SUTENT [Suspect]
     Active Substance: SUNITINIB MALATE
     Indication: CLEAR CELL RENAL CELL CARCINOMA
     Dosage: 50 MG, CYCLIC (50 MG PER DAY DURING 8 CYCLES, BEING ON CYCLE OF 28DAYS AND PAUSE OF 14DAYS)
     Route: 048
     Dates: start: 20190422
  3. PANTOPRAZOLE [Concomitant]
     Active Substance: PANTOPRAZOLE
     Dosage: UNK

REACTIONS (30)
  - Skin haemorrhage [Recovered/Resolved]
  - Periorbital swelling [Unknown]
  - Mouth injury [Not Recovered/Not Resolved]
  - Buccal mucosal roughening [Not Recovered/Not Resolved]
  - Swollen tongue [Recovered/Resolved]
  - Hypersensitivity [Not Recovered/Not Resolved]
  - Migraine [Not Recovered/Not Resolved]
  - Neuropathy peripheral [Unknown]
  - Blood disorder [Unknown]
  - Thyroid disorder [Not Recovered/Not Resolved]
  - Erythema [Recovered/Resolved]
  - Fatigue [Unknown]
  - Headache [Recovered/Resolved]
  - Blood thyroid stimulating hormone increased [Unknown]
  - Hypovitaminosis [Unknown]
  - Oral pain [Not Recovered/Not Resolved]
  - Pain in extremity [Recovered/Resolved]
  - Skin exfoliation [Not Recovered/Not Resolved]
  - Yellow skin [Unknown]
  - Urine odour abnormal [Unknown]
  - Swelling face [Unknown]
  - Nausea [Not Recovered/Not Resolved]
  - Vomiting [Recovered/Resolved]
  - Chromaturia [Unknown]
  - Hypertension [Not Recovered/Not Resolved]
  - Oral discomfort [Recovered/Resolved]
  - Rash macular [Recovered/Resolved]
  - Vitamin D decreased [Unknown]
  - Limb injury [Not Recovered/Not Resolved]
  - Pain in extremity [Unknown]

NARRATIVE: CASE EVENT DATE: 201905
